FAERS Safety Report 11718750 (Version 1)
Quarter: 2015Q4

REPORT INFORMATION
  Report Type: Spontaneous
  Country: ES (occurrence: ES)
  Receive Date: 20151109
  Receipt Date: 20151109
  Transmission Date: 20160304
  Serious: Yes (Other)
  Sender: FDA-Public Use
  Company Number: ALCN2015ES006811

PATIENT
  Age: 58 Year
  Sex: Female

DRUGS (18)
  1. PHENYLEPHRINE HCL [Suspect]
     Active Substance: PHENYLEPHRINE HYDROCHLORIDE
     Indication: VISUAL ACUITY REDUCED
     Dosage: 1 DF, Q6H
     Route: 047
     Dates: start: 201311
  2. PHENYLEPHRINE HCL [Suspect]
     Active Substance: PHENYLEPHRINE HYDROCHLORIDE
     Indication: VITRITIS
  3. ATROPINE SULFATE. [Suspect]
     Active Substance: ATROPINE SULFATE
     Indication: IRIS ADHESIONS
     Dosage: UNK
     Route: 047
     Dates: start: 20131105
  4. TRIAMCINOLONE ACETONIDE. [Suspect]
     Active Substance: TRIAMCINOLONE ACETONIDE
     Indication: IRIS ADHESIONS
     Dosage: UNK
     Route: 031
     Dates: start: 20131105
  5. TROPICAMIDE. [Suspect]
     Active Substance: TROPICAMIDE
     Indication: VITRITIS
  6. PREDNISOLONE ACETATE. [Concomitant]
     Active Substance: PREDNISOLONE ACETATE
     Indication: IRIS ADHESIONS
     Dosage: UNK
     Route: 065
  7. YELLOX [Concomitant]
     Active Substance: BROMFENAC SODIUM
     Indication: CHORIORETINITIS
  8. YELLOX [Concomitant]
     Active Substance: BROMFENAC SODIUM
     Indication: VISUAL ACUITY REDUCED
  9. YELLOX [Concomitant]
     Active Substance: BROMFENAC SODIUM
     Indication: IRIS ADHESIONS
     Dosage: 1 DF, Q12H
     Route: 065
  10. PHENYLEPHRINE HCL [Suspect]
     Active Substance: PHENYLEPHRINE HYDROCHLORIDE
     Indication: IRIS ADHESIONS
  11. PHENYLEPHRINE HCL [Suspect]
     Active Substance: PHENYLEPHRINE HYDROCHLORIDE
     Indication: CHORIORETINITIS
  12. TROPICAMIDE. [Suspect]
     Active Substance: TROPICAMIDE
     Indication: VISUAL ACUITY REDUCED
     Dosage: 1 DF, Q6H
     Route: 047
  13. TROPICAMIDE. [Suspect]
     Active Substance: TROPICAMIDE
     Indication: IRIS ADHESIONS
  14. ATROPINE SULFATE. [Suspect]
     Active Substance: ATROPINE SULFATE
     Indication: CHORIORETINITIS
  15. YELLOX [Concomitant]
     Active Substance: BROMFENAC SODIUM
     Indication: VITRITIS
  16. TROPICAMIDE. [Suspect]
     Active Substance: TROPICAMIDE
     Indication: CHORIORETINITIS
  17. ATROPINE SULFATE. [Suspect]
     Active Substance: ATROPINE SULFATE
     Indication: VISUAL ACUITY REDUCED
     Dosage: 1 DF, Q6H
     Route: 047
     Dates: start: 201311
  18. ATROPINE SULFATE. [Suspect]
     Active Substance: ATROPINE SULFATE
     Indication: VITRITIS

REACTIONS (8)
  - Uveitis [Recovering/Resolving]
  - Iris adhesions [Recovering/Resolving]
  - Visual acuity reduced [Recovering/Resolving]
  - Anterior chamber flare [Recovering/Resolving]
  - Vitritis [Recovering/Resolving]
  - Chorioretinitis [Recovering/Resolving]
  - Off label use [Unknown]
  - Iridocyclitis [Recovering/Resolving]

NARRATIVE: CASE EVENT DATE: 201311
